FAERS Safety Report 8503795-0 (Version None)
Quarter: 2012Q3

REPORT INFORMATION
  Report Type: 
  Country: None (occurrence: None)
  Receive Date: 20120711
  Receipt Date: 20120628
  Transmission Date: 20120928
  Serious: Yes (Other)
  Sender: FDA-Public Use
  Company Number: AU-BRISTOL-MYERS SQUIBB COMPANY-16731929

PATIENT
  Age: 68 Year
  Sex: Female

DRUGS (1)
  1. IRBESARTAN + HYDROCHLOROTHIAZIDE [Suspect]
     Dosage: 1 DF: AVAPRO HCT 300/25MG
     Dates: start: 20020101

REACTIONS (3)
  - CORONARY ARTERY OCCLUSION [None]
  - SENSATION OF BLOOD FLOW [None]
  - MUSCULOSKELETAL PAIN [None]
